FAERS Safety Report 19149777 (Version 4)
Quarter: 2021Q2

REPORT INFORMATION
  Report Type: Spontaneous
  Country: US (occurrence: US)
  Receive Date: 20210416
  Receipt Date: 20210621
  Transmission Date: 20210717
  Serious: No
  Sender: FDA-Public Use
  Company Number: US-BRISTOL-MYERS SQUIBB COMPANY-BMS-2021-037006

PATIENT
  Age: 12 Year
  Sex: Female

DRUGS (11)
  1. HIZENTRA [Suspect]
     Active Substance: HUMAN IMMUNOGLOBULIN G
     Indication: PRODUCT USED FOR UNKNOWN INDICATION
     Dosage: UNK
     Route: 065
  2. METHOTREXATE. [Concomitant]
     Active Substance: METHOTREXATE
     Indication: PRODUCT USED FOR UNKNOWN INDICATION
     Dosage: 25 MILLIGRAM, TID
     Route: 058
  3. ORENCIA [Suspect]
     Active Substance: ABATACEPT
     Dosage: UNK
     Route: 065
     Dates: start: 202104
  4. PREDNISONE. [Concomitant]
     Active Substance: PREDNISONE
     Indication: PRODUCT USED FOR UNKNOWN INDICATION
     Dosage: 10 MILLIGRAM, QD
     Route: 048
  5. MYCOPHENOLATE [Concomitant]
     Active Substance: MYCOPHENOLIC ACID
     Indication: DERMATOMYOSITIS
     Dosage: 1000 MILLIGRAM, BID
     Route: 048
  6. ORENCIA [Suspect]
     Active Substance: ABATACEPT
     Indication: DERMATOMYOSITIS
     Dosage: 87.5MG/0.7ML, QWK
     Route: 058
     Dates: start: 20200610
  7. ORENCIA [Suspect]
     Active Substance: ABATACEPT
     Indication: DERMATOMYOSITIS
     Dosage: 87.5MG/0.7ML, QWK
     Route: 058
     Dates: start: 20200610
  8. ORENCIA [Suspect]
     Active Substance: ABATACEPT
     Dosage: 87.5 MILLIGRAM, QWK
     Route: 058
     Dates: start: 2020
  9. ORENCIA [Suspect]
     Active Substance: ABATACEPT
     Dosage: UNK
     Route: 065
     Dates: start: 202104
  10. ORENCIA [Suspect]
     Active Substance: ABATACEPT
     Dosage: 87.5 MILLIGRAM, QWK
     Route: 058
     Dates: start: 2020
  11. FOLIC ACID. [Concomitant]
     Active Substance: FOLIC ACID
     Indication: PRODUCT USED FOR UNKNOWN INDICATION
     Dosage: 1 MILLIGRAM, QD
     Route: 048

REACTIONS (5)
  - Swelling [Unknown]
  - Pain [Unknown]
  - Headache [Unknown]
  - Pruritus [Unknown]
  - Intentional product use issue [Unknown]
